FAERS Safety Report 8255582-9 (Version None)
Quarter: 2012Q1

REPORT INFORMATION
  Report Type: 
  Country: None (occurrence: None)
  Receive Date: 20120330
  Receipt Date: 20120319
  Transmission Date: 20120608
  Serious: Yes (Other)
  Sender: FDA-Public Use
  Company Number: AUR-APL-2012-01541

PATIENT
  Age: 58 Year
  Sex: Female

DRUGS (3)
  1. SERTRALINE HYDROCHLORIDE [Suspect]
     Indication: BIPOLAR DISORDER
     Dosage: (50 MG,1 D)
  2. ZIPRASIDONE HCL [Suspect]
     Indication: BIPOLAR DISORDER
     Dosage: 80 MG (40 MG,2 IN 1 D)
  3. BENZTROPINE MESYLATE [Concomitant]

REACTIONS (3)
  - PARKINSONISM [None]
  - EXTRAPYRAMIDAL DISORDER [None]
  - RABBIT SYNDROME [None]
